FAERS Safety Report 10588724 (Version 2)
Quarter: 2015Q1

REPORT INFORMATION
  Report Type: Spontaneous
  Country: US (occurrence: US)
  Receive Date: 20141117
  Receipt Date: 20150115
  Transmission Date: 20150720
  Serious: Yes (Hospitalization, Other)
  Sender: FDA-Public Use
  Company Number: US-GLAXOSMITHKLINE-US2014GSK020572

PATIENT
  Sex: Male

DRUGS (13)
  1. LASIX [Concomitant]
     Active Substance: FUROSEMIDE
  2. HEART MEDICATION [Concomitant]
     Active Substance: UNSPECIFIED INGREDIENT
  3. HYDROCODONE [Concomitant]
     Active Substance: HYDROCODONE
  4. ADVAIR DISKUS [Suspect]
     Active Substance: FLUTICASONE PROPIONATE\SALMETEROL XINAFOATE
     Indication: CHRONIC OBSTRUCTIVE PULMONARY DISEASE
     Dosage: 1 PUFF(S), QD
     Route: 055
  5. ANTIBIOTIC (DRUG NAME UNKNOWN) [Concomitant]
     Active Substance: UNSPECIFIED INGREDIENT
  6. CPAP (CONTINUOUS POSITIVE AIRWAY PRESSURE) [Concomitant]
  7. BLOOD PRESSURE MED [Concomitant]
  8. LEVOTHYROXINE [Concomitant]
     Active Substance: LEVOTHYROXINE
  9. OXYGEN. [Concomitant]
     Active Substance: OXYGEN
  10. PROAIR HFA [Concomitant]
     Active Substance: ALBUTEROL SULFATE
  11. SPIRIVA [Concomitant]
     Active Substance: TIOTROPIUM BROMIDE MONOHYDRATE
  12. ASPIRIN. [Concomitant]
     Active Substance: ASPIRIN
  13. PRIMIDONE. [Concomitant]
     Active Substance: PRIMIDONE

REACTIONS (5)
  - Knee arthroplasty [Recovered/Resolved]
  - Arthropathy [Recovered/Resolved]
  - Oxygen saturation decreased [Recovered/Resolved]
  - Aortic aneurysm rupture [Recovered/Resolved]
  - Hypoacusis [Not Recovered/Not Resolved]

NARRATIVE: CASE EVENT DATE: 2012
